FAERS Safety Report 22152913 (Version 1)
Quarter: 2023Q1

REPORT INFORMATION
  Report Type: Spontaneous
  Country: US (occurrence: US)
  Receive Date: 20230329
  Receipt Date: 20230329
  Transmission Date: 20230418
  Serious: Yes (Hospitalization, Other)
  Sender: FDA-Public Use
  Company Number: US-JNJFOC-20230355318

PATIENT
  Age: 72 Year
  Sex: Female
  Weight: 70.370 kg

DRUGS (4)
  1. XARELTO [Interacting]
     Active Substance: RIVAROXABAN
     Indication: Product used for unknown indication
     Route: 048
  2. IMIGLUCERASE [Suspect]
     Active Substance: IMIGLUCERASE
     Indication: Gaucher^s disease
     Dosage: EVERY OTHER WEEK
     Route: 042
     Dates: start: 19950316
  3. IMIGLUCERASE [Suspect]
     Active Substance: IMIGLUCERASE
     Dosage: AT A DOSE OF 48U/KG BODY?DOSE OF 3600, Q2
     Dates: start: 20140610
  4. COUMADIN [Concomitant]
     Active Substance: WARFARIN SODIUM

REACTIONS (14)
  - Small intestinal obstruction [Not Recovered/Not Resolved]
  - Pulmonary hypertension [Unknown]
  - Cerebrovascular accident [Not Recovered/Not Resolved]
  - Platelet count decreased [Not Recovered/Not Resolved]
  - Road traffic accident [Recovering/Resolving]
  - Sternal fracture [Recovering/Resolving]
  - Pulmonary embolism [Recovered/Resolved]
  - Drug interaction [Recovered/Resolved]
  - Syncope [Recovered/Resolved]
  - Rosacea [Recovering/Resolving]
  - Ocular rosacea [Recovering/Resolving]
  - Rash pruritic [Recovering/Resolving]
  - Gait disturbance [Recovered/Resolved]
  - Head injury [Recovered/Resolved]

NARRATIVE: CASE EVENT DATE: 20160101
